FAERS Safety Report 8817630 (Version 2)
Quarter: 2012Q4

REPORT INFORMATION
  Report Type: 
  Country: IN (occurrence: IN)
  Receive Date: 20121001
  Receipt Date: 20121008
  Transmission Date: 20130627
  Serious: Yes (Other)
  Sender: FDA-Public Use
  Company Number: IN-RANBAXY-2012RR-60645

PATIENT
  Age: 50 Year
  Sex: Female
  Weight: 51 kg

DRUGS (3)
  1. PIPERACILLIN/TAZOBACTAM STRAGEN [Suspect]
     Indication: BRONCHIECTASIS
     Dosage: 4g piperacillin/ 0.5g tazobactam three times daily
     Route: 042
  2. RANITIDINE [Suspect]
     Indication: BRONCHIECTASIS
     Dosage: 150 mg, qd
     Route: 065
  3. DEXAMETHASONE [Concomitant]
     Indication: BRONCHIECTASIS
     Dosage: 4 mg, bid
     Route: 065

REACTIONS (3)
  - Thrombocytopenia [Recovered/Resolved]
  - Epistaxis [Recovering/Resolving]
  - Drug specific antibody present [None]
